FAERS Safety Report 8143241-2 (Version None)
Quarter: 2012Q1

REPORT INFORMATION
  Report Type: 
  Country: None (occurrence: None)
  Receive Date: 20120217
  Receipt Date: 20120214
  Transmission Date: 20120608
  Serious: Yes (Other)
  Sender: FDA-Public Use
  Company Number: US-PFIZER INC-2012040637

PATIENT
  Sex: Male

DRUGS (10)
  1. LUNESTA [Concomitant]
     Indication: SLEEP DISORDER
     Dosage: DAILY AT NIGHT
  2. NIFEDIPINE [Concomitant]
     Indication: RAYNAUD'S PHENOMENON
     Dosage: 30 MG, DAILY
  3. METAXALONE [Concomitant]
     Indication: BACK PAIN
     Dosage: 800 MG, 3X/DAY
  4. ABILIFY [Concomitant]
     Indication: DEPRESSION
     Dosage: 5 MG, DAILY
  5. PRISTIQ [Suspect]
     Indication: DEPRESSION
  6. DOMPERIDONE [Concomitant]
     Indication: HYPERSENSITIVITY
     Dosage: 10 MG, 2X/DAY
  7. GABAPENTIN [Concomitant]
     Dosage: 600 MG, 3X/DAY
  8. CREON [Concomitant]
     Dosage: UNK
     Route: 048
  9. PRISTIQ [Suspect]
     Indication: GASTROINTESTINAL DISORDER
     Dosage: 150MG, DAILY
     Route: 048
     Dates: start: 20090101, end: 20120201
  10. CLONAZEPAM [Concomitant]
     Indication: ANXIETY
     Dosage: 1.5+2 MG
     Route: 048

REACTIONS (4)
  - SLEEP APNOEA SYNDROME [None]
  - DIZZINESS [None]
  - SOMNOLENCE [None]
  - DISTURBANCE IN ATTENTION [None]
